FAERS Safety Report 9162242 (Version 1)
Quarter: 2013Q1

REPORT INFORMATION
  Report Type: Spontaneous
  Country: BR (occurrence: BR)
  Receive Date: 20130314
  Receipt Date: 20130314
  Transmission Date: 20140127
  Serious: Yes (Death)
  Sender: FDA-Public Use
  Company Number: PHHY2013BR024732

PATIENT
  Age: 78 Year
  Sex: Male

DRUGS (3)
  1. RASILEZ [Suspect]
     Indication: CARDIAC DISORDER
     Dosage: 1 DF, QD (300 MG)
  2. GALVUS [Suspect]
     Indication: DIABETES MELLITUS
     Dosage: 2 DF, QD
  3. INSULIN [Suspect]
     Indication: DIABETES MELLITUS
     Dosage: 30+10 UKN QD

REACTIONS (1)
  - Death [Fatal]
